FAERS Safety Report 6079612-8 (Version None)
Quarter: 2009Q1

REPORT INFORMATION
  Report Type: 
  Country: None (occurrence: None)
  Receive Date: 20090217
  Receipt Date: 20090206
  Transmission Date: 20090719
  Serious: Yes (Other)
  Sender: FDA-Public Use
  Company Number: ES-JNJFOC-20090203022

PATIENT
  Age: 64 Year
  Sex: Female
  Weight: 65 kg

DRUGS (4)
  1. RISPERDAL CONSTA [Suspect]
     Indication: DELIRIUM
     Route: 030
  2. DRUG UNKNOWN [Concomitant]
     Indication: ANTIINFLAMMATORY THERAPY
  3. DRUG UNKNOWN [Concomitant]
     Indication: HYPERTENSION
  4. DRUG UNKNOWN [Concomitant]
     Indication: DIABETES MELLITUS MANAGEMENT

REACTIONS (1)
  - CARDIOVASCULAR DISORDER [None]
